FAERS Safety Report 5641905-3 (Version None)
Quarter: 2008Q1

REPORT INFORMATION
  Report Type: 
  Country: None (occurrence: None)
  Receive Date: 20080131
  Receipt Date: 20071012
  Transmission Date: 20080703
  Serious: No
  Sender: FDA-Public Use
  Company Number: 163-21880-07100774

PATIENT
  Age: 58 Year
  Sex: Female

DRUGS (2)
  1. REVLIMID [Suspect]
     Indication: MULTIPLE MYELOMA
     Dosage: 25 MG, DAILY X 21 DAYS, ORAL ; 25 MG, 1 IN 1 D, ORAL
     Route: 048
     Dates: start: 20071004, end: 20071005
  2. REVLIMID [Suspect]
     Indication: MULTIPLE MYELOMA
     Dosage: 25 MG, DAILY X 21 DAYS, ORAL ; 25 MG, 1 IN 1 D, ORAL
     Route: 048
     Dates: start: 20071001

REACTIONS (1)
  - HERPES VIRUS INFECTION [None]
